FAERS Safety Report 24655085 (Version 2)
Quarter: 2025Q3

REPORT INFORMATION
  Report Type: Spontaneous
  Country: GB (occurrence: GB)
  Receive Date: 20241122
  Receipt Date: 20250803
  Transmission Date: 20251021
  Serious: Yes (Death, Other)
  Sender: ALEXION PHARMACEUTICALS
  Company Number: None

PATIENT
  Age: 81 Year
  Sex: Male
  Weight: 95 kg

DRUGS (11)
  1. DAPAGLIFLOZIN [Suspect]
     Active Substance: DAPAGLIFLOZIN
     Indication: Cardiac failure
     Dosage: 10MG ONCE A DAY
     Dates: start: 20220110, end: 20241002
  2. FERROUS FUMARATE [Concomitant]
     Active Substance: FERROUS FUMARATE
     Dosage: 210 MILLIGRAM, Q12H
     Route: 065
  3. Comirnaty [Concomitant]
  4. FUROSEMIDE [Concomitant]
     Active Substance: FUROSEMIDE
  5. EPLERENONE [Concomitant]
     Active Substance: EPLERENONE
     Indication: Product used for unknown indication
     Route: 065
  6. EPLERENONE [Concomitant]
     Active Substance: EPLERENONE
  7. MIRTAZAPINE [Concomitant]
     Active Substance: MIRTAZAPINE
  8. LANSOPRAZOLE [Concomitant]
     Active Substance: LANSOPRAZOLE
  9. SACUBITRIL [Concomitant]
     Active Substance: SACUBITRIL
     Dosage: SACUBITRIL 24MG / VALSARTAN 26MG
  10. BISOPROLOL [Concomitant]
     Active Substance: BISOPROLOL
  11. RIVAROXABAN [Concomitant]
     Active Substance: RIVAROXABAN

REACTIONS (2)
  - Necrotising fasciitis [Fatal]
  - Sepsis [Fatal]

NARRATIVE: CASE EVENT DATE: 20241003
